FAERS Safety Report 8803671 (Version 1)
Quarter: 2012Q4

REPORT INFORMATION
  Report Type: 
  Country: AR (occurrence: AR)
  Receive Date: 20120924
  Receipt Date: 20120924
  Transmission Date: 20130627
  Serious: Yes (Hospitalization)
  Sender: FDA-Public Use
  Company Number: AR-AMGEN-ARGSP2012056479

PATIENT
  Age: 49 Year
  Sex: Female

DRUGS (3)
  1. ENBREL [Suspect]
     Indication: PSORIASIS
     Dosage: 50 mg, weekly
     Route: 058
     Dates: start: 20110819, end: 20120826
  2. ENALAPRIL [Concomitant]
     Dosage: UNK
  3. DIUREX                             /00022001/ [Concomitant]
     Dosage: UNK

REACTIONS (2)
  - Cholelithiasis [Recovering/Resolving]
  - Malaise [Unknown]
